FAERS Safety Report 8142124-1 (Version None)
Quarter: 2012Q1

REPORT INFORMATION
  Report Type: 
  Country: None (occurrence: None)
  Receive Date: 20120103
  Receipt Date: 20111015
  Transmission Date: 20120608
  Serious: No
  Sender: FDA-Public Use
  Company Number: AE-2011-002359

PATIENT
  Age: 53 Year
  Weight: 95.2554 kg

DRUGS (4)
  1. RIBASPHERE [Concomitant]
  2. SPIRIVA [Concomitant]
  3. PEGINTERFERON (PEGINTERFERON ALFA-2A) [Concomitant]
  4. INCIVEK [Suspect]
     Dosage: (TWO TABS THREE TIMES A DAY BY MOUTH),ORAL
     Route: 048
     Dates: start: 20111014

REACTIONS (1)
  - PAIN [None]
